FAERS Safety Report 5627834-X (Version None)
Quarter: 2008Q1

REPORT INFORMATION
  Report Type: 
  Country: None (occurrence: None)
  Receive Date: 20080215
  Receipt Date: 20080206
  Transmission Date: 20080703
  Serious: Yes (Other)
  Sender: FDA-Public Use
  Company Number: GB-ASTRAZENECA-2008GB00231

PATIENT
  Age: 57 Year
  Sex: Male

DRUGS (3)
  1. QUETIAPINE FUMARATE [Suspect]
     Route: 048
     Dates: start: 20070919, end: 20071114
  2. CITALOPRAM HYDROBROMIDE [Concomitant]
     Route: 048
  3. OLANZAPINE [Concomitant]
     Route: 048

REACTIONS (6)
  - MALAISE [None]
  - PALPITATIONS [None]
  - RASH [None]
  - SWOLLEN TONGUE [None]
  - VOMITING [None]
  - WHEEZING [None]
